FAERS Safety Report 10961984 (Version 3)
Quarter: 2015Q2

REPORT INFORMATION
  Report Type: Spontaneous
  Country: IT (occurrence: IT)
  Receive Date: 20150327
  Receipt Date: 20150422
  Transmission Date: 20150821
  Serious: Yes (Death, Hospitalization)
  Sender: FDA-Public Use
  Company Number: IT-009507513-1503ITA011534

PATIENT
  Age: 64 Year
  Sex: Female

DRUGS (12)
  1. REBETOL [Suspect]
     Active Substance: RIBAVIRIN
     Indication: CHRONIC HEPATITIS C
     Dosage: 1000 MG DAILY
     Route: 048
     Dates: start: 20141219, end: 20150223
  2. ALLOPURINOL. [Concomitant]
     Active Substance: ALLOPURINOL
     Indication: HYPERURICAEMIA
     Route: 048
  3. LANTUS [Concomitant]
     Active Substance: INSULIN GLARGINE
     Indication: DIABETES MELLITUS
     Dosage: UNK
     Route: 058
     Dates: start: 20141219, end: 20150202
  4. APIDRA [Concomitant]
     Active Substance: INSULIN GLULISINE
     Indication: DIABETES MELLITUS
  5. HUMALOG [Concomitant]
     Active Substance: INSULIN LISPRO
     Indication: DIABETES MELLITUS
     Dosage: STRENGTH 100 U/ML
     Route: 058
     Dates: start: 20141219, end: 20150202
  6. LANSOPRAZOLE. [Concomitant]
     Active Substance: LANSOPRAZOLE
     Route: 048
  7. TORSEMIDE. [Concomitant]
     Active Substance: TORSEMIDE
     Indication: ASCITES
     Dosage: UNK
     Route: 048
     Dates: start: 20141114, end: 20150104
  8. QUETIAPINE FUMARATE. [Concomitant]
     Active Substance: QUETIAPINE FUMARATE
     Indication: DEPRESSION
     Route: 048
  9. SOVALDI [Suspect]
     Active Substance: SOFOSBUVIR
     Indication: CHRONIC HEPATITIS C
     Dosage: 400 MG DAILY
     Route: 048
     Dates: start: 20141219, end: 20150223
  10. MYCOPHENOLATE MOFETIL. [Concomitant]
     Active Substance: MYCOPHENOLATE MOFETIL
     Indication: PROPHYLAXIS AGAINST TRANSPLANT REJECTION
     Dosage: UNK
     Route: 048
     Dates: start: 20090101, end: 20150202
  11. CYCLOSPORINE. [Concomitant]
     Active Substance: CYCLOSPORINE
     Indication: PROPHYLAXIS AGAINST TRANSPLANT REJECTION
     Dosage: UNK
     Route: 048
     Dates: start: 20090101, end: 20150202
  12. HALOPERIDOL. [Concomitant]
     Active Substance: HALOPERIDOL
     Dosage: 10 DROPS
     Route: 048

REACTIONS (1)
  - Psychomotor hyperactivity [Fatal]

NARRATIVE: CASE EVENT DATE: 20150223
